FAERS Safety Report 17158983 (Version 1)
Quarter: 2019Q4

REPORT INFORMATION
  Report Type: Spontaneous
  Country: US (occurrence: US)
  Receive Date: 20191216
  Receipt Date: 20191216
  Transmission Date: 20200122
  Serious: Yes (Other)
  Sender: FDA-Public Use
  Company Number: US-PFIZER INC-2019268486

PATIENT
  Age: 69 Year
  Sex: Female

DRUGS (3)
  1. PREMARIN [Suspect]
     Active Substance: ESTROGENS, CONJUGATED
     Dosage: UNK (2-3 TIMES PER WEEK)
  2. PREMARIN [Suspect]
     Active Substance: ESTROGENS, CONJUGATED
     Dosage: UNK (APPLY PEA SIZE AMOUNT TO FINGER TIP, NIGHTLY X 2 WEEK THEN APPLY 2-3 X PER WEEK)
  3. PREMARIN [Suspect]
     Active Substance: ESTROGENS, CONJUGATED
     Dosage: UNK, 2X/WEEK (APPLY PEA-SIZE AMOUNT W/ FINGER HP NIGHTLY X2 TIMES PER WEEK THEREAFTER)

REACTIONS (4)
  - Off label use [Unknown]
  - Product prescribing error [Unknown]
  - Pelvic prolapse [Unknown]
  - Hypertonic bladder [Unknown]
